FAERS Safety Report 9364750 (Version 1)
Quarter: 2013Q2

REPORT INFORMATION
  Report Type: Spontaneous
  Country: CN (occurrence: CN)
  Receive Date: 20130624
  Receipt Date: 20130624
  Transmission Date: 20140414
  Serious: Yes (Hospitalization)
  Sender: FDA-Public Use
  Company Number: CN-JNJFOC-20130613214

PATIENT
  Age: 76 Year
  Sex: Female

DRUGS (1)
  1. TOPAMAX [Suspect]
     Indication: TRIGEMINAL NEURALGIA
     Route: 048
     Dates: start: 20120426, end: 20120528

REACTIONS (5)
  - Arrhythmia [Recovered/Resolved]
  - Chest pain [Recovered/Resolved]
  - Atrioventricular block [Recovered/Resolved]
  - Heart rate decreased [Recovered/Resolved]
  - Palpitations [Recovered/Resolved]
